FAERS Safety Report 11502810 (Version 2)
Quarter: 2016Q3

REPORT INFORMATION
  Report Type: Spontaneous
  Country: US (occurrence: US)
  Receive Date: 20150914
  Receipt Date: 20160726
  Transmission Date: 20161109
  Serious: Yes (Hospitalization)
  Sender: FDA-Public Use
  Company Number: US-ASTELLAS-2015US029264

PATIENT
  Age: 86 Year
  Sex: Male

DRUGS (3)
  1. XTANDI [Suspect]
     Active Substance: ENZALUTAMIDE
     Indication: PROSTATE CANCER
     Dosage: 160 MG (40 MG X 4 CAPSULES), ONCE DAILY
     Route: 048
     Dates: start: 20150710
  2. CARTIA                             /00002701/ [Concomitant]
     Active Substance: ASPIRIN
     Indication: BLOOD PRESSURE ABNORMAL
     Route: 048
     Dates: start: 2012
  3. XTANDI [Suspect]
     Active Substance: ENZALUTAMIDE
     Indication: HORMONE-REFRACTORY PROSTATE CANCER

REACTIONS (14)
  - Vertigo [Recovering/Resolving]
  - Cough [Recovered/Resolved]
  - Headache [Recovering/Resolving]
  - Anxiety [Unknown]
  - Fatigue [Not Recovered/Not Resolved]
  - Asthenia [Unknown]
  - Respiratory tract infection [Recovered/Resolved]
  - Muscular weakness [Unknown]
  - Fatigue [Recovering/Resolving]
  - Cough [Recovered/Resolved]
  - Cerebrovascular accident [Recovering/Resolving]
  - Fatigue [Unknown]
  - Visual acuity reduced [Unknown]
  - Dizziness [Unknown]

NARRATIVE: CASE EVENT DATE: 201601
